FAERS Safety Report 21972891 (Version 2)
Quarter: 2023Q1

REPORT INFORMATION
  Report Type: Report from Study
  Country: US (occurrence: US)
  Receive Date: 20230209
  Receipt Date: 20230227
  Transmission Date: 20230417
  Serious: Yes (Hospitalization)
  Sender: FDA-Public Use
  Company Number: US-PFIZER INC-PV202300023892

PATIENT
  Age: 17 Year
  Sex: Male
  Weight: 114.1 kg

DRUGS (8)
  1. VINCRISTINE SULFATE [Suspect]
     Active Substance: VINCRISTINE SULFATE
     Indication: Acute lymphocytic leukaemia
     Dosage: 2 MG, ONCE
     Route: 042
     Dates: start: 20221222
  2. RUXOLITINIB [Suspect]
     Active Substance: RUXOLITINIB
     Indication: Acute lymphocytic leukaemia
     Dosage: 100 MG, BID
     Route: 048
     Dates: start: 20221222, end: 20221224
  3. PEGASPARGASE [Suspect]
     Active Substance: PEGASPARGASE
     Indication: Acute lymphocytic leukaemia
     Dosage: 3750 IU, ONCE
     Route: 042
     Dates: start: 20221222
  4. SCOPOLAMINE [Concomitant]
     Active Substance: SCOPOLAMINE
     Dosage: UNK
     Dates: start: 20221222
  5. KYTRIL [Concomitant]
     Active Substance: GRANISETRON HYDROCHLORIDE
     Dosage: UNK
     Dates: start: 20221222, end: 20221222
  6. APREPITANT [Concomitant]
     Active Substance: APREPITANT
     Dosage: UNK
     Dates: start: 20221222
  7. FAMOTIDINE [Concomitant]
     Active Substance: FAMOTIDINE
     Dosage: UNK
     Dates: start: 20221222, end: 20221222
  8. BENADRYL [Concomitant]
     Active Substance: DIPHENHYDRAMINE HYDROCHLORIDE
     Dosage: UNK
     Dates: start: 20221222, end: 20221222

REACTIONS (3)
  - Neutropenic colitis [Recovering/Resolving]
  - Bacterial translocation [Recovering/Resolving]
  - Escherichia bacteraemia [Recovering/Resolving]

NARRATIVE: CASE EVENT DATE: 20221225
